FAERS Safety Report 9728021 (Version 1)
Quarter: 2013Q4

REPORT INFORMATION
  Report Type: Spontaneous
  Country: BR (occurrence: BR)
  Receive Date: 20131204
  Receipt Date: 20131204
  Transmission Date: 20140711
  Serious: Yes (Hospitalization, Other)
  Sender: FDA-Public Use
  Company Number: BR-ASTRAZENECA-2013SE87318

PATIENT
  Age: 21777 Day
  Sex: Female
  Weight: 74 kg

DRUGS (14)
  1. ABLOK [Suspect]
     Indication: HYPERTENSION
     Route: 048
     Dates: start: 2007
  2. OMEPRAZOLE [Suspect]
     Indication: GASTRITIS PROPHYLAXIS
     Route: 048
     Dates: start: 2007, end: 20131122
  3. OMEPRAZOLE [Suspect]
     Indication: GASTRITIS PROPHYLAXIS
     Route: 048
     Dates: start: 20131123
  4. ROSUVASTATIN CALCIUM [Suspect]
     Indication: BLOOD CHOLESTEROL INCREASED
     Route: 048
     Dates: start: 201211
  5. BRILINTA [Suspect]
     Indication: MYOCARDIAL INFARCTION
     Route: 048
     Dates: start: 20131115
  6. ATORVASTATIN [Suspect]
     Indication: BLOOD CHOLESTEROL INCREASED
     Dosage: DAILY
     Route: 048
     Dates: start: 2007
  7. SIMVASTATIN [Suspect]
     Indication: BLOOD CHOLESTEROL INCREASED
     Dosage: DAILY
     Route: 048
     Dates: end: 201211
  8. CLOPIDOGREL BISULFATE [Suspect]
     Indication: MYOCARDIAL INFARCTION
     Dosage: DAILY
     Route: 048
     Dates: start: 2007, end: 20131114
  9. ASA [Concomitant]
     Indication: ANTIPLATELET THERAPY
     Dosage: DAILY
     Route: 048
     Dates: start: 2007, end: 2011
  10. LIPLESS [Concomitant]
     Indication: BLOOD TRIGLYCERIDES INCREASED
     Route: 048
     Dates: start: 2007
  11. NITRENDIPINE [Concomitant]
     Indication: HYPERTENSION
     Dosage: DAILY
     Route: 048
     Dates: start: 2011
  12. LOSARTAN POTASSIUM [Concomitant]
     Indication: HYPERTENSION
     Route: 048
     Dates: start: 2011
  13. SOMALGIN [Concomitant]
     Indication: ANTIPLATELET THERAPY
     Dosage: DAILY
     Route: 048
     Dates: start: 2011
  14. UNKNOWN [Concomitant]
     Indication: HYPERTENSION
     Dates: end: 2011

REACTIONS (9)
  - Myocardial infarction [Recovered/Resolved]
  - Device occlusion [Recovered/Resolved]
  - Haematochezia [Recovered/Resolved]
  - Ear haemorrhage [Recovered/Resolved]
  - Blood cholesterol increased [Recovering/Resolving]
  - Decreased appetite [Not Recovered/Not Resolved]
  - Memory impairment [Not Recovered/Not Resolved]
  - Vomiting [Not Recovered/Not Resolved]
  - Off label use [Not Recovered/Not Resolved]
